FAERS Safety Report 21935962 (Version 1)
Quarter: 2023Q1

REPORT INFORMATION
  Report Type: Spontaneous
  Country: IT (occurrence: IT)
  Receive Date: 20230201
  Receipt Date: 20230201
  Transmission Date: 20230418
  Serious: Yes (Other)
  Sender: FDA-Public Use
  Company Number: None

PATIENT
  Age: 43 Year
  Sex: Female
  Weight: 54 kg

DRUGS (6)
  1. PACLITAXEL [Suspect]
     Active Substance: PACLITAXEL
     Indication: Breast neoplasm
     Dosage: 100 MILLIGRAM, 100MG FOR 60 MINUTES
     Route: 042
     Dates: start: 202209, end: 20221216
  2. DEXAMETHASONE [Concomitant]
     Active Substance: DEXAMETHASONE
     Indication: Drug hypersensitivity
     Dosage: 4 MILLIGRAM, 4 MG FOR 15 MINUTES
     Route: 042
     Dates: start: 202209, end: 20221216
  3. TRIMETON [Concomitant]
     Active Substance: CHLORPHENIRAMINE MALEATE
     Indication: Antiallergic therapy
     Dosage: 10 MILLIGRAM, 10MG FOR15 MINUTES
     Route: 042
     Dates: start: 202209, end: 20221216
  4. ONDANSETRON [Concomitant]
     Active Substance: ONDANSETRON
     Indication: Nausea
     Dosage: 8 MILLIGRAM, 8MG FOR 15 MINUTES
     Route: 042
     Dates: start: 202209, end: 20221216
  5. TAMOXIFEN [Concomitant]
     Active Substance: TAMOXIFEN
     Indication: Breast cancer
     Dosage: 20 MILLIGRAM, QD, 20MG PER DAY
     Route: 048
     Dates: start: 202205, end: 20221222
  6. FAMOTIDINA [Concomitant]
     Indication: Ulcer
     Dosage: 20 MILLIGRAM, 20MG FOR 20 MINUTES
     Route: 042
     Dates: start: 202209, end: 20221216

REACTIONS (13)
  - Neutropenia [Recovering/Resolving]
  - Leukopenia [Recovering/Resolving]
  - Disturbance in attention [Not Recovered/Not Resolved]
  - Madarosis [Not Recovered/Not Resolved]
  - Paraesthesia [Recovering/Resolving]
  - Dysgeusia [Not Recovered/Not Resolved]
  - Dry skin [Not Recovered/Not Resolved]
  - Memory impairment [Not Recovered/Not Resolved]
  - Aphthous ulcer [Recovering/Resolving]
  - Onychoclasis [Recovering/Resolving]
  - Asthenia [Not Recovered/Not Resolved]
  - Alopecia [Recovering/Resolving]
  - Nausea [Not Recovered/Not Resolved]

NARRATIVE: CASE EVENT DATE: 20220901
